FAERS Safety Report 4754248-7 (Version None)
Quarter: 2005Q3

REPORT INFORMATION
  Report Type: 
  Country: None (occurrence: None)
  Receive Date: 20050829
  Receipt Date: 20050817
  Transmission Date: 20060218
  Serious: Yes (Hospitalization)
  Sender: FDA-Public Use
  Company Number: BR-JNJFOC-20050805008

PATIENT
  Age: 6 Year
  Sex: Female

DRUGS (1)
  1. HALDOL [Suspect]

REACTIONS (4)
  - ACCIDENTAL EXPOSURE [None]
  - CONVULSION [None]
  - DECREASED ACTIVITY [None]
  - MIOSIS [None]
